FAERS Safety Report 5281411-1 (Version None)
Quarter: 2007Q1

REPORT INFORMATION
  Report Type: 
  Country: None (occurrence: None)
  Receive Date: 20070328
  Receipt Date: 20070328
  Transmission Date: 20070707
  Serious: Yes (Hospitalization)
  Sender: FDA-Public Use
  Company Number: None

PATIENT
  Age: 57 Year
  Sex: Female
  Weight: 54 kg

DRUGS (1)
  1. LEUKINE [Suspect]
     Indication: MALIGNANT MELANOMA
     Dosage: 500 MCG (ONCE)
     Dates: start: 20070315

REACTIONS (6)
  - CONFUSIONAL STATE [None]
  - HEADACHE [None]
  - METASTASES TO CENTRAL NERVOUS SYSTEM [None]
  - NAUSEA [None]
  - OEDEMA [None]
  - PARAESTHESIA [None]
